FAERS Safety Report 6525894-5 (Version None)
Quarter: 2009Q4

REPORT INFORMATION
  Report Type: 
  Country: None (occurrence: None)
  Receive Date: 20091224
  Receipt Date: 20091216
  Transmission Date: 20100525
  Serious: Yes (Hospitalization)
  Sender: FDA-Public Use
  Company Number: CAP09000374

PATIENT
  Age: 52 Year
  Sex: Male

DRUGS (1)
  1. ACTONEL [Suspect]
     Indication: BONE DISORDER
     Dosage: 35 MG ONCE WEEKLY, NASOGASTRIC
     Dates: end: 20090101

REACTIONS (3)
  - INCORRECT ROUTE OF DRUG ADMINISTRATION [None]
  - MOUTH HAEMORRHAGE [None]
  - PNEUMONIA [None]
